FAERS Safety Report 14192947 (Version 1)
Quarter: 2017Q4

REPORT INFORMATION
  Report Type: Spontaneous
  Country: US (occurrence: US)
  Receive Date: 20171115
  Receipt Date: 20171115
  Transmission Date: 20180321
  Serious: No
  Sender: FDA-Public Use
  Company Number: US-NEOS THERAPEUTICS, LP-2017NEO00066

PATIENT
  Sex: Male
  Weight: 31.75 kg

DRUGS (3)
  1. ADZENYS XR-ODT [Suspect]
     Active Substance: AMPHETAMINE
     Dosage: 12.5 MG, UNK
  2. VITAMIN D [Concomitant]
     Active Substance: CHOLECALCIFEROL
  3. VAYARIN [Concomitant]
     Active Substance: DOCONEXENT\ICOSAPENT\PHOSPHATIDYL SERINE

REACTIONS (4)
  - Drug administration error [Unknown]
  - Drug effect incomplete [Unknown]
  - Frustration tolerance decreased [Unknown]
  - Oppositional defiant disorder [Not Recovered/Not Resolved]
